FAERS Safety Report 9358842 (Version 1)
Quarter: 2013Q2

REPORT INFORMATION
  Report Type: Spontaneous
  Country: US (occurrence: US)
  Receive Date: 20130620
  Receipt Date: 20130620
  Transmission Date: 20140414
  Serious: Yes (Other)
  Sender: FDA-Public Use
  Company Number: US-BRISTOL-MYERS SQUIBB COMPANY-19011006

PATIENT
  Age: 63 Year
  Sex: Female

DRUGS (13)
  1. TAXOL [Suspect]
     Dosage: REINTRODUCED ON 4SP08
     Dates: start: 2008
  2. CARBOPLATIN [Suspect]
     Dates: start: 2008
  3. HERCEPTIN [Suspect]
     Dosage: REINTRODUCED ON 4SP08
     Route: 042
     Dates: start: 20041122
  4. LAPATINIB [Suspect]
  5. TAVEGYL [Concomitant]
  6. ZANTAC [Concomitant]
  7. SOLU-MEDROL [Concomitant]
  8. TEMESTA [Concomitant]
  9. PREDNISOLONE [Concomitant]
  10. KYTRIL [Concomitant]
  11. EMPERAL [Concomitant]
  12. ZOFRAN [Concomitant]
  13. CORODIL [Concomitant]

REACTIONS (18)
  - Malignant neoplasm progression [Unknown]
  - Ejection fraction decreased [Unknown]
  - Neutropenia [Unknown]
  - Atelectasis [Unknown]
  - Fatigue [Unknown]
  - Dyspnoea [Unknown]
  - Nail disorder [Recovered/Resolved]
  - Chest pain [Unknown]
  - Sleep disorder [Unknown]
  - Myalgia [Unknown]
  - Feeling hot [Recovered/Resolved]
  - Rash pustular [Unknown]
  - Skin fissures [Recovered/Resolved]
  - Skin ulcer [Unknown]
  - Cough [Unknown]
  - Local swelling [Unknown]
  - Lip swelling [Unknown]
  - Malaise [Recovered/Resolved]
